FAERS Safety Report 7793280-6 (Version None)
Quarter: 2011Q3

REPORT INFORMATION
  Report Type: 
  Country: None (occurrence: None)
  Receive Date: 20110930
  Receipt Date: 20110930
  Transmission Date: 20111222
  Serious: No
  Sender: FDA-Public Use
  Company Number: None

PATIENT
  Sex: Female
  Weight: 47.1741 kg

DRUGS (1)
  1. CIPROFLOXACIN [Suspect]

REACTIONS (7)
  - TENDON PAIN [None]
  - INJURY [None]
  - GAIT DISTURBANCE [None]
  - ARTHRALGIA [None]
  - OEDEMA PERIPHERAL [None]
  - PAIN [None]
  - LOWER LIMB FRACTURE [None]
